FAERS Safety Report 8011128-1 (Version None)
Quarter: 2011Q4

REPORT INFORMATION
  Report Type: 
  Country: None (occurrence: None)
  Receive Date: 20111222
  Receipt Date: 20111212
  Transmission Date: 20120403
  Serious: Yes (Death)
  Sender: FDA-Public Use
  Company Number: 2011AT000478

PATIENT
  Age: 75 Year
  Sex: Female

DRUGS (2)
  1. MOXIFLOXACIN HCL [Suspect]
     Indication: PRODUCT USED FOR UNKNOWN INDICATION
     Dosage: 400 MG;QD; DRUG USE FOR UNKNOWN INDICATION
  2. THEOPHYLLINE [Suspect]
     Indication: PRODUCT USED FOR UNKNOWN INDICATION
     Dosage: 450 MG;QD;  300 MG;QD

REACTIONS (5)
  - SUPRAVENTRICULAR TACHYCARDIA [None]
  - PULMONARY OEDEMA [None]
  - DRUG INTERACTION [None]
  - RENAL FAILURE ACUTE [None]
  - ACCIDENTAL OVERDOSE [None]
